FAERS Safety Report 21271088 (Version 1)
Quarter: 2022Q3

REPORT INFORMATION
  Report Type: Spontaneous
  Country: US (occurrence: US)
  Receive Date: 20220830
  Receipt Date: 20220830
  Transmission Date: 20221027
  Serious: No
  Sender: FDA-Public Use
  Company Number: US-INSUD PHARMA-2208US03252

PATIENT

DRUGS (2)
  1. FOSFOMYCIN [Suspect]
     Active Substance: FOSFOMYCIN
     Indication: Urinary tract infection
     Dosage: UNK, SINGLE
     Route: 048
     Dates: start: 20220725, end: 20220725
  2. PHENAZOPYRIDINE [Concomitant]
     Active Substance: PHENAZOPYRIDINE
     Indication: Urinary tract infection
     Dosage: OVER-THE-COUNTER

REACTIONS (10)
  - Drug ineffective [Not Recovered/Not Resolved]
  - Food poisoning [Recovered/Resolved]
  - Malaise [Recovered/Resolved]
  - Pyrexia [Unknown]
  - Nausea [Unknown]
  - Vomiting [Recovered/Resolved]
  - Diarrhoea [Recovered/Resolved]
  - Constipation [Not Recovered/Not Resolved]
  - Oral herpes [Not Recovered/Not Resolved]
  - Glossodynia [Not Recovered/Not Resolved]

NARRATIVE: CASE EVENT DATE: 20220725
